FAERS Safety Report 9381602 (Version 13)
Quarter: 2016Q3

REPORT INFORMATION
  Report Type: Spontaneous
  Country: BR (occurrence: BR)
  Receive Date: 20130703
  Receipt Date: 20160725
  Transmission Date: 20161109
  Serious: Yes (Hospitalization, Other)
  Sender: FDA-Public Use
  Company Number: BR-PFIZER INC-2013195151

PATIENT
  Age: 49 Year
  Sex: Male
  Weight: 71.5 kg

DRUGS (7)
  1. SUTENT [Suspect]
     Active Substance: SUNITINIB MALATE
     Indication: METASTATIC RENAL CELL CARCINOMA
     Dosage: 50 MG, 1X/DAY, CYCLIC (4 WEEKS ON/2 WEEKS OFF)
     Route: 048
     Dates: start: 20130424
  2. ZOMETA [Suspect]
     Active Substance: ZOLEDRONIC ACID
     Indication: BONE DENSITY DECREASED
     Dosage: 1 DF (1 INJECTION), MONTHLY
     Dates: start: 201306, end: 2014
  3. SYNTHROID [Concomitant]
     Active Substance: LEVOTHYROXINE SODIUM
     Indication: THYROID DISORDER
  4. LISADOR [Concomitant]
     Active Substance: DIPYRONE\PROMETHAZINE HYDROCHLORIDE
     Dosage: UNSPECIFIED DOSE, EVERY 8 HOURS
  5. PRESSAT [Concomitant]
     Active Substance: AMLODIPINE BESYLATE
     Indication: BLOOD PRESSURE INCREASED
  6. SUTENT [Suspect]
     Active Substance: SUNITINIB MALATE
     Dosage: 50 MG, CYCLIC (2 WEEKS ON/1 WEEK OFF)
     Route: 048
     Dates: start: 201509
  7. CODEINE [Concomitant]
     Active Substance: CODEINE
     Dosage: UNSPECIFIED DOSE, EVERY 12 HOURS

REACTIONS (24)
  - Tumour pain [Not Recovered/Not Resolved]
  - Intervertebral disc disorder [Unknown]
  - Impaired healing [Not Recovered/Not Resolved]
  - Ageusia [Not Recovered/Not Resolved]
  - Oral pain [Not Recovered/Not Resolved]
  - Epistaxis [Not Recovered/Not Resolved]
  - Bone density decreased [Recovered/Resolved]
  - Dizziness [Recovered/Resolved]
  - Gingival disorder [Unknown]
  - Skin exfoliation [Not Recovered/Not Resolved]
  - Fatigue [Not Recovered/Not Resolved]
  - Skin irritation [Not Recovered/Not Resolved]
  - Tooth disorder [Recovered/Resolved]
  - Joint stiffness [Unknown]
  - Hypokinesia [Unknown]
  - Osteonecrosis of jaw [Not Recovered/Not Resolved]
  - Tooth disorder [Unknown]
  - Dyspnoea [Not Recovered/Not Resolved]
  - Dry skin [Unknown]
  - Disease progression [Unknown]
  - Glossodynia [Not Recovered/Not Resolved]
  - Hyperaesthesia [Not Recovered/Not Resolved]
  - Jaw fracture [Not Recovered/Not Resolved]
  - Metastatic renal cell carcinoma [Unknown]

NARRATIVE: CASE EVENT DATE: 2013
